FAERS Safety Report 8516268-6 (Version None)
Quarter: 2012Q3

REPORT INFORMATION
  Report Type: 
  Country: None (occurrence: None)
  Receive Date: 20120717
  Receipt Date: 20120702
  Transmission Date: 20120928
  Serious: Yes (Other)
  Sender: FDA-Public Use
  Company Number: CHPA2012US015016

PATIENT
  Age: 74 Year
  Sex: Female

DRUGS (3)
  1. EXCEDRIN EXTRA STRENGTH TABLETS [Suspect]
     Indication: MIGRAINE
     Dosage: 2 TO 4 DF, EACH DAY
     Route: 048
     Dates: start: 19600101
  2. FEMARA [Concomitant]
     Dosage: UNK, UNK
     Dates: start: 20080101
  3. PROZAC [Concomitant]
     Indication: NERVOUS SYSTEM DISORDER
     Dosage: UNK, UNK

REACTIONS (3)
  - INNER EAR DISORDER [None]
  - INCORRECT DRUG ADMINISTRATION DURATION [None]
  - GASTRIC DISORDER [None]
